FAERS Safety Report 17429055 (Version 1)
Quarter: 2020Q1

REPORT INFORMATION
  Report Type: Spontaneous
  Country: CN (occurrence: CN)
  Receive Date: 20200218
  Receipt Date: 20200218
  Transmission Date: 20200409
  Serious: Yes (Hospitalization)
  Sender: FDA-Public Use
  Company Number: CN-PFIZER INC-2020070034

PATIENT
  Age: 29 Year
  Sex: Male
  Weight: 70 kg

DRUGS (3)
  1. SODIUM CHLORIDE 0.9% [Concomitant]
     Active Substance: SODIUM CHLORIDE
     Indication: VEHICLE SOLUTION USE
     Dosage: 100 ML, 4X/DAY
     Route: 041
     Dates: start: 20191218, end: 20200106
  2. ZYVOX [Suspect]
     Active Substance: LINEZOLID
     Indication: BRAIN ABSCESS
     Dosage: 600 MG, 2X/DAY
     Route: 041
     Dates: start: 20200108, end: 20200114
  3. VANCOMYCIN HYDROCHLORIDE. [Suspect]
     Active Substance: VANCOMYCIN HYDROCHLORIDE
     Indication: BRAIN ABSCESS
     Dosage: 500000 IU, 4X/DAY
     Route: 041
     Dates: start: 20191218, end: 20200106

REACTIONS (9)
  - Lymphocyte count decreased [Recovering/Resolving]
  - Monocyte count decreased [Recovering/Resolving]
  - Plateletcrit decreased [Recovering/Resolving]
  - Rash [Recovering/Resolving]
  - Pruritus [Recovering/Resolving]
  - White blood cell count decreased [Recovering/Resolving]
  - Neutrophil count decreased [Recovering/Resolving]
  - Haematocrit decreased [Recovering/Resolving]
  - Platelet count decreased [Recovering/Resolving]

NARRATIVE: CASE EVENT DATE: 20200111
